FAERS Safety Report 9577356 (Version 1)
Quarter: 2013Q4

REPORT INFORMATION
  Report Type: Spontaneous
  Country: US (occurrence: US)
  Receive Date: 20131001
  Receipt Date: 20131001
  Transmission Date: 20140711
  Serious: No
  Sender: FDA-Public Use
  Company Number: US-AMGEN-USASP2013007509

PATIENT
  Sex: Female
  Weight: 72.56 kg

DRUGS (16)
  1. ENBREL [Suspect]
     Indication: RHEUMATOID ARTHRITIS
     Dosage: UNK
  2. ADVIL                              /00109201/ [Concomitant]
     Dosage: UNK
  3. ARAVA [Concomitant]
     Dosage: UNK
  4. ARTHOTEC [Concomitant]
     Dosage: UNK
  5. CALCIUM [Concomitant]
     Dosage: UNK
  6. CENTRUM                            /07499601/ [Concomitant]
     Dosage: UNK
  7. CLOBEX                             /00012002/ [Concomitant]
     Dosage: UNK
  8. GENTEAL                            /00445101/ [Concomitant]
     Dosage: UNK
  9. HYDROCHLOROTHIAZIDE [Concomitant]
     Dosage: UNK
  10. LUNESTA [Concomitant]
     Dosage: UNK
  11. K                                  /00031401/ [Concomitant]
     Dosage: UNK
  12. PREVACID [Concomitant]
     Dosage: UNK
  13. RESTASIS [Concomitant]
     Dosage: UNK
  14. SYNTHROID [Concomitant]
     Dosage: UNK
  15. VALACYCLOVIR HCL [Concomitant]
     Dosage: UNK
  16. VIT D [Concomitant]
     Dosage: UNK

REACTIONS (1)
  - Drug ineffective [Unknown]
